FAERS Safety Report 22535435 (Version 3)
Quarter: 2023Q2

REPORT INFORMATION
  Report Type: Spontaneous
  Country: US (occurrence: US)
  Receive Date: 20230608
  Receipt Date: 20230615
  Transmission Date: 20230721
  Serious: No
  Sender: FDA-Public Use
  Company Number: US-BAYER-2023A074859

PATIENT
  Sex: Female

DRUGS (1)
  1. MIRENA [Suspect]
     Active Substance: LEVONORGESTREL
     Indication: Contraception
     Dosage: 20?G/DAY
     Route: 015

REACTIONS (5)
  - Uterine cyst [None]
  - Vaginal discharge [None]
  - Pelvic pain [None]
  - Headache [None]
  - Device issue [None]

NARRATIVE: CASE EVENT DATE: 20230501
